FAERS Safety Report 5422003-0 (Version None)
Quarter: 2007Q3

REPORT INFORMATION
  Report Type: 
  Country: None (occurrence: None)
  Receive Date: 20070822
  Receipt Date: 20070820
  Transmission Date: 20080115
  Serious: Yes (Other)
  Sender: FDA-Public Use
  Company Number: KR-BRISTOL-MYERS SQUIBB COMPANY-13882444

PATIENT
  Age: 9 Year
  Sex: Male

DRUGS (9)
  1. VINCRISTINE SULFATE [Suspect]
     Indication: BRAIN NEOPLASM
  2. ETOPOSIDE [Suspect]
     Indication: BRAIN NEOPLASM
  3. CISPLATIN [Suspect]
     Indication: BRAIN NEOPLASM
  4. CARBOPLATIN [Suspect]
     Indication: BRAIN NEOPLASM
  5. VALPROIC ACID [Concomitant]
     Indication: CONVULSION
  6. PHENYTOIN [Concomitant]
     Indication: CONVULSION
  7. TOPIRAMATE [Concomitant]
  8. CLONAZEPAM [Concomitant]
  9. ANTIBIOTICS [Concomitant]
     Indication: CAECITIS

REACTIONS (2)
  - COLONIC PSEUDO-OBSTRUCTION [None]
  - PANCYTOPENIA [None]
